FAERS Safety Report 24363106 (Version 3)
Quarter: 2024Q4

REPORT INFORMATION
  Report Type: Report from Study
  Country: US (occurrence: US)
  Receive Date: 20240925
  Receipt Date: 20241215
  Transmission Date: 20250114
  Serious: No
  Sender: SUNOVION
  Company Number: US-SUMITOMO PHARMA SWITZERLAND GMBH-2024SPA002977

PATIENT

DRUGS (1)
  1. ORGOVYX [Suspect]
     Active Substance: RELUGOLIX
     Indication: Prostate cancer
     Dosage: 120 MG, QD
     Route: 048
     Dates: start: 20240815

REACTIONS (8)
  - Herpes simplex [Unknown]
  - Dyspnoea [Unknown]
  - Nasopharyngitis [Unknown]
  - Alopecia [Unknown]
  - Anal incontinence [Unknown]
  - Diarrhoea [Unknown]
  - Hot flush [Unknown]
  - Incorrect dose administered [Unknown]
